FAERS Safety Report 7355338-5 (Version None)
Quarter: 2011Q1

REPORT INFORMATION
  Report Type: 
  Country: None (occurrence: None)
  Receive Date: 20110316
  Receipt Date: 20110308
  Transmission Date: 20110831
  Serious: Yes (Hospitalization, Other)
  Sender: FDA-Public Use
  Company Number: US-ROCHE-737615

PATIENT
  Sex: Female

DRUGS (7)
  1. TEMOZOLOMIDE [Suspect]
     Route: 065
     Dates: start: 20100920
  2. IRINOTECAN HYDROCHLORIDE [Suspect]
     Route: 065
     Dates: start: 20100920
  3. VINCRISTINE [Suspect]
     Route: 065
     Dates: start: 20100920
  4. DOXORUBICIN HCL [Suspect]
     Route: 065
     Dates: start: 20100920
  5. BEVACIZUMAB [Suspect]
     Dosage: LAST PROTOCOL TREATMENT DATE: 21 OCTOBER 2010
     Route: 065
     Dates: start: 20100920
  6. CYCLOPHOSPHAMIDE [Suspect]
     Route: 065
     Dates: start: 20100920
  7. DEXRAZOXANE [Suspect]
     Route: 065
     Dates: start: 20100920

REACTIONS (5)
  - ALANINE AMINOTRANSFERASE INCREASED [None]
  - WHITE BLOOD CELL COUNT DECREASED [None]
  - FEBRILE NEUTROPENIA [None]
  - ASPARTATE AMINOTRANSFERASE INCREASED [None]
  - LYMPHOCYTE COUNT DECREASED [None]
